FAERS Safety Report 14108595 (Version 2)
Quarter: 2017Q4

REPORT INFORMATION
  Report Type: Spontaneous
  Country: CH (occurrence: CH)
  Receive Date: 20171019
  Receipt Date: 20171114
  Transmission Date: 20180321
  Serious: Yes (Other)
  Sender: FDA-Public Use
  Company Number: CH-ENDO PHARMACEUTICALS INC-2017-005557

PATIENT
  Age: 28 Year
  Sex: Male

DRUGS (1)
  1. AVEED [Suspect]
     Active Substance: TESTOSTERONE UNDECANOATE
     Indication: KLINEFELTER^S SYNDROME
     Dosage: 750 MG, REGIMEN #1 ONE INJECTION EVERY 9 MONTHS
     Route: 030
     Dates: start: 2012

REACTIONS (6)
  - Off label use [Recovered/Resolved]
  - Hypersensitivity [Unknown]
  - Cough [Recovered/Resolved]
  - Erythema [Recovered/Resolved]
  - Burning sensation [Recovered/Resolved]
  - Dyspnoea [Recovered/Resolved]

NARRATIVE: CASE EVENT DATE: 2012
